FAERS Safety Report 15058137 (Version 1)
Quarter: 2018Q2

REPORT INFORMATION
  Report Type: Spontaneous
  Country: US (occurrence: US)
  Receive Date: 20180625
  Receipt Date: 20180625
  Transmission Date: 20180711
  Serious: No
  Sender: FDA-Public Use
  Company Number: US-GLENMARK PHARMACEUTICALS-2018GMK033868

PATIENT

DRUGS (2)
  1. MUPIROCIN. [Suspect]
     Active Substance: MUPIROCIN
     Indication: IMPAIRED HEALING
  2. MUPIROCIN. [Suspect]
     Active Substance: MUPIROCIN
     Indication: SCAB
     Dosage: UNK, BID
     Route: 065
     Dates: start: 20180312

REACTIONS (2)
  - Skin discolouration [Unknown]
  - Product use in unapproved indication [Unknown]

NARRATIVE: CASE EVENT DATE: 20180312
